FAERS Safety Report 24351900 (Version 1)
Quarter: 2024Q3

REPORT INFORMATION
  Report Type: Spontaneous
  Country: AU (occurrence: AU)
  Receive Date: 20240923
  Receipt Date: 20240923
  Transmission Date: 20241017
  Serious: Yes (Other)
  Sender: CHEPLAPHARM
  Company Number: AU-CHEPLA-2024011939

PATIENT
  Age: 19 Year
  Sex: Male

DRUGS (10)
  1. OLANZAPINE [Suspect]
     Active Substance: OLANZAPINE
     Indication: Product used for unknown indication
  2. CHLORPROMAZINE HYDROCHLORIDE [Suspect]
     Active Substance: CHLORPROMAZINE HYDROCHLORIDE
     Indication: Product used for unknown indication
  3. CLOZAPINE [Suspect]
     Active Substance: CLOZAPINE
     Indication: Product used for unknown indication
  4. VALPROIC ACID [Suspect]
     Active Substance: VALPROIC ACID
     Indication: Product used for unknown indication
  5. ZUCLOPENTHIXOL [Suspect]
     Active Substance: ZUCLOPENTHIXOL
     Indication: Product used for unknown indication
  6. AMISULPRIDE [Concomitant]
     Active Substance: AMISULPRIDE
  7. ASENAPINE [Concomitant]
     Active Substance: ASENAPINE
  8. LURASIDONE HYDROCHLORIDE [Concomitant]
     Active Substance: LURASIDONE HYDROCHLORIDE
  9. PALIPERIDONE [Concomitant]
     Active Substance: PALIPERIDONE
  10. RISPERIDONE [Concomitant]
     Active Substance: RISPERIDONE

REACTIONS (5)
  - Myocarditis [Unknown]
  - Neutropenia [Unknown]
  - COVID-19 [Unknown]
  - Sinus tachycardia [Unknown]
  - Drug ineffective [Unknown]
